FAERS Safety Report 10063547 (Version 1)
Quarter: 2014Q1

REPORT INFORMATION
  Report Type: Spontaneous
  Country: US (occurrence: None)
  Receive Date: 20140328
  Receipt Date: 20140328
  Transmission Date: 20141002
  Serious: Yes (Other)
  Sender: FDA-Public Use
  Company Number: PHEH2013US026282

PATIENT
  Sex: Male

DRUGS (1)
  1. AFINITOR [Suspect]

REACTIONS (3)
  - Mouth haemorrhage [None]
  - Dyspnoea [None]
  - Thrombosis [None]
